FAERS Safety Report 4556368-9 (Version None)
Quarter: 2005Q1

REPORT INFORMATION
  Report Type: 
  Country: None (occurrence: None)
  Receive Date: 20050103
  Receipt Date: 20040816
  Transmission Date: 20050727
  Serious: Yes (Other)
  Sender: FDA-Public Use
  Company Number: 2004UW17385

PATIENT
  Age: 71 Year
  Sex: Female
  Weight: 82.1011 kg

DRUGS (3)
  1. CRESTOR [Suspect]
     Indication: BLOOD CHOLESTEROL INCREASED
  2. VERAMPRIL [Concomitant]
  3. INSULIN [Concomitant]

REACTIONS (5)
  - ASTHENIA [None]
  - BALANCE DISORDER [None]
  - CONFUSIONAL STATE [None]
  - FATIGUE [None]
  - MYALGIA [None]
